FAERS Safety Report 22661048 (Version 1)
Quarter: 2023Q2

REPORT INFORMATION
  Report Type: Spontaneous
  Country: US (occurrence: None)
  Receive Date: 20230630
  Receipt Date: 20230630
  Transmission Date: 20230721
  Serious: Yes (Life-Threatening, Hospitalization, Other)
  Sender: FDA-Public Use
  Company Number: 2023A144322

PATIENT
  Age: 86 Year
  Sex: Male
  Weight: 84.7 kg

DRUGS (2)
  1. TAGRISSO [Suspect]
     Active Substance: OSIMERTINIB
     Indication: Lung neoplasm malignant
     Route: 048
     Dates: start: 20220224, end: 20220323
  2. TAGRISSO [Suspect]
     Active Substance: OSIMERTINIB
     Indication: Lung adenocarcinoma
     Route: 048
     Dates: start: 20220224, end: 20220323

REACTIONS (6)
  - Atrial fibrillation [Unknown]
  - Cardiac failure chronic [Unknown]
  - Pleural effusion [Unknown]
  - Ejection fraction decreased [Not Recovered/Not Resolved]
  - Mitral valve incompetence [Unknown]
  - Dilatation atrial [Unknown]
